FAERS Safety Report 4959114-X (Version None)
Quarter: 2006Q1

REPORT INFORMATION
  Report Type: 
  Country: None (occurrence: None)
  Receive Date: 20060330
  Receipt Date: 20060330
  Transmission Date: 20060701
  Serious: No
  Sender: FDA-Public Use
  Company Number: None

PATIENT
  Age: 60 Year
  Sex: Female
  Weight: 59.8748 kg

DRUGS (1)
  1. ESTRACE [Suspect]
     Indication: MENOPAUSE
     Dosage: 1 MG 1OR 2 DAY ORAL
     Route: 048

REACTIONS (7)
  - DIZZINESS [None]
  - FEELING ABNORMAL [None]
  - FLUID RETENTION [None]
  - PHARMACEUTICAL PRODUCT COMPLAINT [None]
  - SLUGGISHNESS [None]
  - THINKING ABNORMAL [None]
  - UNEVALUABLE EVENT [None]
